FAERS Safety Report 23067619 (Version 2)
Quarter: 2023Q4

REPORT INFORMATION
  Report Type: Report from Study
  Country: US (occurrence: US)
  Receive Date: 20231016
  Receipt Date: 20231123
  Transmission Date: 20240109
  Serious: Yes (Other)
  Sender: FDA-Public Use
  Company Number: US-ABBVIE-5450122

PATIENT
  Sex: Female

DRUGS (2)
  1. SKYRIZI [Suspect]
     Active Substance: RISANKIZUMAB-RZAA
     Indication: Psoriasis
     Dosage: FORM STRENGTH: 150MG/ML,?WEEK 0
     Route: 058
     Dates: start: 20230907, end: 20230907
  2. SKYRIZI [Suspect]
     Active Substance: RISANKIZUMAB-RZAA
     Indication: Psoriasis
     Dosage: FORM STRENGTH: 150MG/ML,?WEEK 4 AND THEN EVERY 12 WEEKS THEREAFTER
     Route: 058
     Dates: start: 202310

REACTIONS (4)
  - Fungal skin infection [Recovering/Resolving]
  - Viral infection [Recovered/Resolved]
  - Skin papilloma [Unknown]
  - Nasopharyngitis [Recovered/Resolved]

NARRATIVE: CASE EVENT DATE: 20230101
